FAERS Safety Report 23721387 (Version 1)
Quarter: 2024Q2

REPORT INFORMATION
  Report Type: Report from Study
  Country: US (occurrence: US)
  Receive Date: 20240409
  Receipt Date: 20240409
  Transmission Date: 20240715
  Serious: Yes (Other)
  Sender: FDA-Public Use
  Company Number: US-ABBVIE-5708660

PATIENT
  Age: 49 Year
  Sex: Female

DRUGS (1)
  1. HUMIRA [Suspect]
     Active Substance: ADALIMUMAB
     Indication: Crohn^s disease
     Dosage: FORM STRENGTH: 40 MILLIGRAM CITRATE FREE
     Route: 058
     Dates: start: 20170711

REACTIONS (9)
  - Hysterectomy [Recovering/Resolving]
  - Peroneal nerve palsy [Recovering/Resolving]
  - Uterine leiomyoma [Recovering/Resolving]
  - Breast cancer [Recovered/Resolved]
  - Memory impairment [Recovering/Resolving]
  - Neuropathy peripheral [Recovering/Resolving]
  - Renal disorder [Recovering/Resolving]
  - Stent placement [Recovering/Resolving]
  - Bladder dysfunction [Recovering/Resolving]

NARRATIVE: CASE EVENT DATE: 20220815
